FAERS Safety Report 5588940-1 (Version None)
Quarter: 2007Q4

REPORT INFORMATION
  Report Type: 
  Country: None (occurrence: None)
  Receive Date: 20071211
  Receipt Date: 20071017
  Transmission Date: 20080405
  Serious: No
  Sender: FDA-Public Use
  Company Number: 002#2#2007-00265

PATIENT
  Age: 64 Year
  Sex: Female
  Weight: 40.8237 kg

DRUGS (4)
  1. NEUPRO [Suspect]
     Indication: PARKINSON'S DISEASE
     Dosage: 3MG/24H,1 IN 1 D,TRANSDERMAL
     Route: 062
     Dates: start: 20070801
  2. REQUIP [Concomitant]
  3. SINEMET [Concomitant]
  4. LEVODOPA [Concomitant]

REACTIONS (6)
  - DRY MOUTH [None]
  - FEELING ABNORMAL [None]
  - HEART RATE IRREGULAR [None]
  - HYPERTENSION [None]
  - MEDICATION ERROR [None]
  - PARAESTHESIA [None]
